FAERS Safety Report 21915571 (Version 1)
Quarter: 2023Q1

REPORT INFORMATION
  Report Type: Report from Study
  Country: US (occurrence: None)
  Receive Date: 20230126
  Receipt Date: 20230126
  Transmission Date: 20230418
  Serious: Yes (Hospitalization)
  Sender: FDA-Public Use
  Company Number: US-Ultragenyx Pharmaceutical Inc.-US-UGNX-23-00031

PATIENT
  Age: 15 Year
  Sex: Male

DRUGS (2)
  1. DOJOLVI [Suspect]
     Active Substance: TRIHEPTANOIN
     Indication: Fatty acid oxidation disorder
     Dosage: 68 ML DAILY
     Route: 048
     Dates: start: 202008, end: 202301
  2. DOJOLVI [Suspect]
     Active Substance: TRIHEPTANOIN
     Dosage: 88 ML DAILY
     Route: 048
     Dates: start: 202301

REACTIONS (2)
  - Hospitalisation [Recovered/Resolved]
  - Laboratory test abnormal [Recovered/Resolved]

NARRATIVE: CASE EVENT DATE: 20230101
